FAERS Safety Report 20430832 (Version 1)
Quarter: 2022Q1

REPORT INFORMATION
  Report Type: Report from Study
  Country: FR (occurrence: FR)
  Receive Date: 20220204
  Receipt Date: 20220204
  Transmission Date: 20220423
  Serious: Yes (Other)
  Sender: FDA-Public Use
  Company Number: FR-SERVIER-S21006533

PATIENT

DRUGS (7)
  1. PEGASPARGASE [Suspect]
     Active Substance: PEGASPARGASE
     Indication: Acute lymphocytic leukaemia
     Dosage: 1875 IU, D12
     Route: 042
     Dates: start: 20170515
  2. TN UNSPECIFIED [Concomitant]
     Indication: Acute lymphocytic leukaemia
     Dosage: 4.5 MG, D1-D19
     Route: 048
     Dates: start: 20170511
  3. TN UNSPECIFIED [Concomitant]
     Indication: Acute lymphocytic leukaemia
     Dosage: 1.1 MG, D8-D15
     Route: 042
     Dates: start: 20170511
  4. TN UNSPECIFIED [Concomitant]
     Indication: Acute lymphocytic leukaemia
     Dosage: 12 MG, D13
     Route: 037
     Dates: start: 20170516
  5. COTRIMOXAZOLE [Concomitant]
     Active Substance: SULFAMETHOXAZOLE\TRIMETHOPRIM
     Indication: Infection prophylaxis
     Dosage: 480 MG
     Route: 048
     Dates: start: 20170504, end: 20181127
  6. TN UNSPECIFIED [Concomitant]
     Indication: Steroid diabetes
     Dosage: 10 IU
     Route: 058
     Dates: start: 20170518, end: 20170521
  7. TN UNSPECIFIED [Concomitant]
     Dosage: 3 IU
     Route: 058
     Dates: start: 20170522, end: 20170523

REACTIONS (1)
  - Hyperlipidaemia [Recovered/Resolved]

NARRATIVE: CASE EVENT DATE: 20170522
